FAERS Safety Report 25776497 (Version 1)
Quarter: 2025Q3

REPORT INFORMATION
  Report Type: Spontaneous
  Country: US (occurrence: US)
  Receive Date: 20250909
  Receipt Date: 20250909
  Transmission Date: 20251020
  Serious: No
  Sender: DOMPE FARMACEUTICI
  Company Number: US-FARMAPROD-202503-0726

PATIENT
  Sex: Female

DRUGS (7)
  1. OXERVATE [Suspect]
     Active Substance: CENEGERMIN-BKBJ
     Indication: Neurotrophic keratopathy
     Route: 047
     Dates: start: 20250222
  2. OXERVATE [Suspect]
     Active Substance: CENEGERMIN-BKBJ
  3. GABAPENTIN [Concomitant]
     Active Substance: GABAPENTIN
  4. SIMVASTATIN [Concomitant]
     Active Substance: SIMVASTATIN
  5. LEVOTHYROXINE SODIUM [Concomitant]
     Active Substance: LEVOTHYROXINE SODIUM
  6. LISINOPRIL [Concomitant]
     Active Substance: LISINOPRIL
  7. ESTRADIOL [Concomitant]
     Active Substance: ESTRADIOL

REACTIONS (3)
  - Eye pain [Unknown]
  - Accidental overdose [Unknown]
  - Rhinorrhoea [Unknown]
